FAERS Safety Report 6958829-1 (Version None)
Quarter: 2010Q3

REPORT INFORMATION
  Report Type: 
  Country: None (occurrence: None)
  Receive Date: 20100831
  Receipt Date: 20100819
  Transmission Date: 20110219
  Serious: Yes (Death, Hospitalization)
  Sender: FDA-Public Use
  Company Number: US-BRISTOL-MYERS SQUIBB COMPANY-14297469

PATIENT
  Age: 56 Year
  Sex: Male

DRUGS (15)
  1. BMS690514 [Suspect]
     Indication: NEOPLASM
     Dosage: START DATE: 03-JUL-2010 AT 100 MG. DOSE MODIFICATION ON 09-AUG-2008 TO 12-AUG-2008 (150 MG).
     Route: 048
     Dates: start: 20080703, end: 20080811
  2. LEUCOVORIN CALCIUM [Suspect]
     Indication: NEOPLASM
     Dosage: START DATE: 03JUL08. THERAPY DOSE MODIFICATION ON 09-AUG-2008 TO 12-AUG-2008
     Route: 042
     Dates: start: 20080703, end: 20080730
  3. FLUOROURACIL [Suspect]
     Indication: NEOPLASM
     Dosage: START DATE: 03JUL08. THERAPY DOSE MODIFICATION ON 09-AUG-2008 TO 12-AUG-2008
     Route: 042
     Dates: start: 20080703, end: 20080730
  4. OXALIPLATIN [Suspect]
     Indication: NEOPLASM
     Dosage: THERAPY DOSE MODIFICATION ON 09-AUG-2008 TO 12-AUG-2008
     Route: 042
     Dates: start: 20080703, end: 20080730
  5. LEVSIN [Concomitant]
     Dates: start: 20080710, end: 20080829
  6. DULCOLAX [Concomitant]
     Dates: start: 20080729, end: 20080829
  7. OXYCODONE [Concomitant]
     Dates: start: 20080710, end: 20080829
  8. IMODIUM [Concomitant]
     Dates: start: 20080705, end: 20080829
  9. OXYCONTIN [Concomitant]
     Dates: start: 20080818, end: 20080829
  10. PRILOSEC [Concomitant]
     Dates: start: 20071001, end: 20080829
  11. METFORMIN HCL [Concomitant]
     Dates: start: 20060101, end: 20080829
  12. DIOVAN [Concomitant]
     Dates: start: 20050101, end: 20080829
  13. LISINOPRIL [Concomitant]
     Dates: start: 20080301, end: 20080829
  14. LOVENOX [Concomitant]
     Dates: start: 20071101, end: 20080829
  15. COMPAZINE [Concomitant]
     Dates: start: 20080301, end: 20080829

REACTIONS (3)
  - BLOOD CREATININE INCREASED [None]
  - MALIGNANT ASCITES [None]
  - RENAL FAILURE [None]
